FAERS Safety Report 20033739 (Version 1)
Quarter: 2021Q4

REPORT INFORMATION
  Report Type: Spontaneous
  Country: KR (occurrence: KR)
  Receive Date: 20211104
  Receipt Date: 20211104
  Transmission Date: 20220304
  Serious: Yes (Hospitalization)
  Sender: FDA-Public Use
  Company Number: KR-KYOWAKIRIN-2021AKK018148

PATIENT
  Age: 66 Year
  Sex: Female

DRUGS (32)
  1. FILGRASTIM [Suspect]
     Active Substance: FILGRASTIM
     Indication: Product used for unknown indication
     Dosage: UNK UNK, QD
     Route: 042
     Dates: start: 20120917, end: 20120918
  2. DECITABINE [Suspect]
     Active Substance: DECITABINE
     Indication: Product used for unknown indication
     Dosage: 16 MG/M2
     Route: 042
     Dates: start: 20110316, end: 20110320
  3. DECITABINE [Suspect]
     Active Substance: DECITABINE
     Dosage: 16 MG/M2
     Route: 042
     Dates: start: 20110413, end: 20110417
  4. DECITABINE [Suspect]
     Active Substance: DECITABINE
     Dosage: 16 MG/M2
     Route: 042
     Dates: start: 20110516, end: 20110520
  5. DECITABINE [Suspect]
     Active Substance: DECITABINE
     Dosage: 16 MG/M2
     Route: 042
     Dates: start: 20110628, end: 20110702
  6. DECITABINE [Suspect]
     Active Substance: DECITABINE
     Dosage: 16 MG/M2
     Route: 042
     Dates: start: 20110822, end: 20110826
  7. DECITABINE [Suspect]
     Active Substance: DECITABINE
     Dosage: 16 MG/M2
     Route: 042
     Dates: start: 20111107, end: 20111111
  8. DECITABINE [Suspect]
     Active Substance: DECITABINE
     Dosage: 16 MG/M2
     Route: 042
     Dates: start: 20120131, end: 20120204
  9. DECITABINE [Suspect]
     Active Substance: DECITABINE
     Dosage: 16 MG/M2
     Route: 042
     Dates: start: 20120416, end: 20120420
  10. DECITABINE [Suspect]
     Active Substance: DECITABINE
     Dosage: 16 MG/M2
     Route: 042
     Dates: start: 20120607, end: 20120611
  11. DECITABINE [Suspect]
     Active Substance: DECITABINE
     Dosage: 16 MG/M2
     Route: 042
     Dates: start: 20120827, end: 20120831
  12. DECITABINE [Suspect]
     Active Substance: DECITABINE
     Dosage: 20 MG/M2
     Route: 042
     Dates: start: 20110316, end: 20110320
  13. DECITABINE [Suspect]
     Active Substance: DECITABINE
     Dosage: 20 MG/M2
     Route: 042
     Dates: start: 20110413, end: 20110417
  14. DECITABINE [Suspect]
     Active Substance: DECITABINE
     Dosage: 20 MG/M2
     Route: 042
     Dates: start: 20110516, end: 20110520
  15. DECITABINE [Suspect]
     Active Substance: DECITABINE
     Dosage: 20 MG/M2
     Route: 042
     Dates: start: 20110628, end: 20110702
  16. DECITABINE [Suspect]
     Active Substance: DECITABINE
     Dosage: 20 MG/M2
     Route: 042
     Dates: start: 20110822, end: 20110826
  17. DECITABINE [Suspect]
     Active Substance: DECITABINE
     Dosage: 20 MG/M2
     Route: 042
     Dates: start: 20111107, end: 20111111
  18. DECITABINE [Suspect]
     Active Substance: DECITABINE
     Dosage: 20 MG/M2
     Route: 042
     Dates: start: 20120131, end: 20120204
  19. DECITABINE [Suspect]
     Active Substance: DECITABINE
     Dosage: 20 MG/M2
     Route: 042
     Dates: start: 20120416, end: 20120420
  20. DECITABINE [Suspect]
     Active Substance: DECITABINE
     Dosage: 20 MG/M2
     Route: 042
     Dates: start: 20120607, end: 20120611
  21. DECITABINE [Suspect]
     Active Substance: DECITABINE
     Dosage: 20 MG/M2
     Route: 042
     Dates: start: 20120827, end: 20120831
  22. CEFTAZIDIME [Concomitant]
     Active Substance: CEFTAZIDIME
     Indication: Product used for unknown indication
     Dosage: UNK UNK, QD
     Route: 042
     Dates: start: 20120914, end: 20120918
  23. CIPROFLOXACIN [Concomitant]
     Active Substance: CIPROFLOXACIN
     Indication: Product used for unknown indication
     Dosage: UNK UNK, QD
     Route: 048
     Dates: end: 20120914
  24. CIPROFLOXACIN [Concomitant]
     Active Substance: CIPROFLOXACIN
     Dosage: UNK
     Route: 065
     Dates: start: 20110316, end: 20110412
  25. FOLIC ACID [Concomitant]
     Active Substance: FOLIC ACID
     Indication: Product used for unknown indication
     Dosage: UNK
     Route: 065
  26. ITRACONAZOLE [Concomitant]
     Active Substance: ITRACONAZOLE
     Indication: Product used for unknown indication
     Dosage: UNK UNK, QD
     Route: 048
     Dates: end: 20120918
  27. MEGESTROL [Concomitant]
     Active Substance: MEGESTROL
     Indication: Product used for unknown indication
     Dosage: UNK
     Route: 048
  28. MOSAPRIDE [Concomitant]
     Active Substance: MOSAPRIDE
     Indication: Product used for unknown indication
     Dosage: UNK
     Route: 048
  29. ACETAMINOPHEN [Concomitant]
     Active Substance: ACETAMINOPHEN
     Indication: Product used for unknown indication
     Dosage: UNK UNK, QD
     Route: 048
     Dates: start: 20120915, end: 20120921
  30. PYRIDOXINE [Concomitant]
     Active Substance: PYRIDOXINE
     Indication: Product used for unknown indication
     Dosage: UNK
     Route: 065
  31. REBAMIPIDE [Concomitant]
     Active Substance: REBAMIPIDE
     Indication: Product used for unknown indication
     Dosage: UNK MG, QD
     Route: 048
     Dates: start: 20110517
  32. URSODIOL [Concomitant]
     Active Substance: URSODIOL
     Indication: Product used for unknown indication
     Dosage: UNK MG, QD
     Route: 048
     Dates: end: 20120714

REACTIONS (4)
  - Mouth ulceration [Recovered/Resolved]
  - Infection [Recovered/Resolved]
  - Infection [Recovered/Resolved]
  - Mouth ulceration [Recovered/Resolved]

NARRATIVE: CASE EVENT DATE: 20110910
